FAERS Safety Report 7912619-1 (Version None)
Quarter: 2011Q4

REPORT INFORMATION
  Report Type: 
  Country: None (occurrence: None)
  Receive Date: 20111114
  Receipt Date: 20111110
  Transmission Date: 20120403
  Serious: Yes (Other)
  Sender: FDA-Public Use
  Company Number: VE-PFIZER INC-2011202735

PATIENT
  Age: 79 Year
  Sex: Female

DRUGS (2)
  1. INDAPAMIDE [Concomitant]
     Indication: HYPERTENSION
     Dosage: 1.5 MG, UNKNOWN FREQUENCY
     Route: 048
     Dates: start: 20101001, end: 20110818
  2. CADUET [Suspect]
     Indication: HYPERTENSION
     Dosage: [AMLODIPINE BESILATE 5 MG/ ATORVASTATIN CALCIUM 40 MG], 1X/DAY
     Route: 048
     Dates: start: 20101001, end: 20110818

REACTIONS (4)
  - RENAL IMPAIRMENT [None]
  - BLOOD CREATININE INCREASED [None]
  - BLOOD UREA INCREASED [None]
  - HYPERTENSIVE CRISIS [None]
